FAERS Safety Report 9717321 (Version 3)
Quarter: 2014Q1

REPORT INFORMATION
  Report Type: Other
  Country: GB (occurrence: GB)
  Receive Date: 20131127
  Receipt Date: 20140123
  Transmission Date: 20141002
  Serious: Yes (Hospitalization, Other)
  Sender: FDA-Public Use
  Company Number: GB-SHIRE-ALL1-2013-08114

PATIENT
  Age: 28 Year
  Sex: Female
  Weight: 85.9 kg

DRUGS (2)
  1. VPRIV [Suspect]
     Indication: GAUCHER^S DISEASE
     Dosage: 2400 IU, 1X/2WKS(FORTNIGHTLY)
     Route: 041
     Dates: start: 201203
  2. INFLUENZA VACCINE [Suspect]
     Indication: INFLUENZA IMMUNISATION
     Dosage: UNK, ONE DOSE
     Route: 065
     Dates: start: 20131111, end: 20131111

REACTIONS (7)
  - Fall [Unknown]
  - Syncope [Unknown]
  - Blindness transient [Unknown]
  - Headache [Not Recovered/Not Resolved]
  - Vomiting [Recovered/Resolved]
  - Diarrhoea [Recovered/Resolved]
  - Musculoskeletal stiffness [Not Recovered/Not Resolved]
